FAERS Safety Report 4399750-5 (Version None)
Quarter: 2004Q3

REPORT INFORMATION
  Report Type: 
  Country: None (occurrence: None)
  Receive Date: 20040714
  Receipt Date: 20040702
  Transmission Date: 20050211
  Serious: Yes (Hospitalization)
  Sender: FDA-Public Use
  Company Number: 04P-013-0266119-00

PATIENT
  Age: 43 Year
  Sex: Male
  Weight: 113 kg

DRUGS (3)
  1. MERIDIA [Suspect]
     Indication: OBESITY
     Dosage: SEE IMAGE
     Route: 048
     Dates: start: 20031101, end: 20031201
  2. MERIDIA [Suspect]
     Indication: OBESITY
     Dosage: SEE IMAGE
     Route: 048
     Dates: start: 20040301, end: 20040601
  3. CHLORTALIDONE [Concomitant]

REACTIONS (1)
  - HEPATITIS TOXIC [None]
